FAERS Safety Report 6639992-9 (Version None)
Quarter: 2010Q1

REPORT INFORMATION
  Report Type: 
  Country: None (occurrence: None)
  Receive Date: 20100318
  Receipt Date: 20100302
  Transmission Date: 20100710
  Serious: No
  Sender: FDA-Public Use
  Company Number: US-B.I. PHARMACEUTICALS,INC./RIDGEFIELD-2009-BP-09232BP

PATIENT
  Sex: Female

DRUGS (16)
  1. SPIRIVA [Suspect]
     Indication: DYSPNOEA
     Dosage: 18 MCG
     Route: 055
     Dates: start: 20090804, end: 20100224
  2. SPIRIVA [Suspect]
     Indication: COUGH
  3. NASONEX [Concomitant]
     Indication: MULTIPLE ALLERGIES
  4. TOPROL-XL [Concomitant]
     Indication: PROPHYLAXIS
  5. MICARDIS [Concomitant]
     Indication: PROPHYLAXIS
  6. PLAVIX [Concomitant]
     Indication: PROPHYLAXIS
  7. IMDUR [Concomitant]
     Indication: PROPHYLAXIS
  8. PREVACID [Concomitant]
     Indication: PROPHYLAXIS
  9. XYZAL [Concomitant]
     Indication: MULTIPLE ALLERGIES
  10. BONIVA [Concomitant]
     Indication: OSTEOPOROSIS
  11. ECOTRIN [Concomitant]
  12. LIPITOR [Concomitant]
  13. VITAMIN TAB [Concomitant]
  14. FISH OIL [Concomitant]
  15. CALCIUM [Concomitant]
  16. VITAMIN E [Concomitant]

REACTIONS (2)
  - EYE SWELLING [None]
  - HEADACHE [None]
